FAERS Safety Report 18526489 (Version 1)
Quarter: 2020Q4

REPORT INFORMATION
  Report Type: Spontaneous
  Country: US (occurrence: US)
  Receive Date: 20201120
  Receipt Date: 20201120
  Transmission Date: 20210114
  Serious: Yes (Hospitalization, Other)
  Sender: FDA-Public Use
  Company Number: US-BRISTOL-MYERS SQUIBB COMPANY-BMS-2020-096746

PATIENT
  Age: 74 Year
  Sex: Female
  Weight: 97 kg

DRUGS (2)
  1. YERVOY [Suspect]
     Active Substance: IPILIMUMAB
     Indication: PANCREATIC NEUROENDOCRINE TUMOUR
     Dosage: 100 MILLIGRAM
     Route: 065
     Dates: start: 20201023
  2. OPDIVO [Suspect]
     Active Substance: NIVOLUMAB
     Indication: PANCREATIC NEUROENDOCRINE TUMOUR
     Dosage: 320 MILLIGRAM
     Route: 065
     Dates: start: 20201023

REACTIONS (2)
  - Intentional product use issue [Unknown]
  - Loss of consciousness [Unknown]

NARRATIVE: CASE EVENT DATE: 20201106
